FAERS Safety Report 9736338 (Version 2)
Quarter: 2013Q4

REPORT INFORMATION
  Report Type: Report from Study
  Country: GB (occurrence: GB)
  Receive Date: 20131206
  Receipt Date: 20131224
  Transmission Date: 20140711
  Serious: Yes (Other)
  Sender: FDA-Public Use
  Company Number: GB-ROCHE-1306505

PATIENT
  Age: 15 Year
  Sex: Male

DRUGS (2)
  1. PEG-INTERFERON ALFA 2A [Suspect]
     Indication: CHRONIC HEPATITIS B
     Route: 065
  2. LAMIVUDINE [Suspect]
     Indication: CHRONIC HEPATITIS B
     Route: 065

REACTIONS (1)
  - Chalazion [Recovered/Resolved]
